FAERS Safety Report 21722132 (Version 1)
Quarter: 2022Q4

REPORT INFORMATION
  Report Type: Spontaneous
  Country: IE (occurrence: IE)
  Receive Date: 20221213
  Receipt Date: 20221213
  Transmission Date: 20230113
  Serious: Yes (Death)
  Sender: FDA-Public Use
  Company Number: None

PATIENT
  Age: 82 Year
  Sex: Male
  Weight: 81 kg

DRUGS (1)
  1. APIXABAN [Suspect]
     Active Substance: APIXABAN
     Indication: Deep vein thrombosis

REACTIONS (3)
  - Cerebral haemorrhage [Fatal]
  - Subdural haemorrhage [Fatal]
  - Hypoxic-ischaemic encephalopathy [Fatal]

NARRATIVE: CASE EVENT DATE: 20220301
